FAERS Safety Report 10078386 (Version 3)
Quarter: 2014Q2

REPORT INFORMATION
  Report Type: Spontaneous
  Country: JP (occurrence: None)
  Receive Date: 20140331
  Receipt Date: 20140623
  Transmission Date: 20141212
  Serious: Yes (Hospitalization)
  Sender: FDA-Public Use
  Company Number: SYM-2014-18999

PATIENT
  Age: 69 Year
  Sex: Female
  Weight: 56 kg

DRUGS (5)
  1. CHOREAZINE [Suspect]
     Indication: HUNTINGTON^S DISEASE
     Route: 048
     Dates: start: 20130913
  2. SERENACE (HALOPERIDOL) [Concomitant]
  3. MUCODYNE (CARBOCISTEINE) [Concomitant]
  4. PLETAAL (CILOSTAZOL) [Concomitant]
  5. YOKUKANSAN (YOKUKANSAN) (ANGELICA ACUTILOBA ROOT, PORIA COCOS SCLEROTIUM, ATRACTYLODES LANCEA RHIZOME, BUPLEURUM FALCATUM ROOT, CNIDIUM OFFICINALE RHIZOME, UNCARIA SPP. HOOK, GLYCYRRHIZA SPP. ROOT) [Concomitant]

REACTIONS (2)
  - Somnolence [None]
  - Staring [None]
